FAERS Safety Report 6258471-4 (Version None)
Quarter: 2009Q3

REPORT INFORMATION
  Report Type: 
  Country: None (occurrence: None)
  Receive Date: 20090707
  Receipt Date: 20090625
  Transmission Date: 20100115
  Serious: Yes (Death)
  Sender: FDA-Public Use
  Company Number: KR-PFIZER INC-2009233139

PATIENT
  Age: 58 Year

DRUGS (6)
  1. VORICONAZOLE [Suspect]
     Indication: ASPERGILLOSIS
     Dosage: 280 MG, 2X/DAY
     Route: 042
     Dates: start: 20071110, end: 20071111
  2. VALSARTAN [Concomitant]
     Indication: PULMONARY OEDEMA
     Dosage: UNK
     Route: 048
     Dates: start: 20071026, end: 20071113
  3. PANTOPRAZOLE [Concomitant]
     Indication: PROPHYLAXIS
     Dosage: UNK
     Route: 042
     Dates: start: 20071108, end: 20071113
  4. FUROSEMIDE [Concomitant]
     Indication: PULMONARY OEDEMA
     Dosage: UNK
     Route: 042
     Dates: start: 20071019, end: 20071113
  5. MULTI-VITAMINS [Concomitant]
     Indication: MEDICAL DIET
     Dosage: 1 DF, 1X/DAY
     Route: 042
     Dates: start: 20071101, end: 20071110
  6. MEROPENEM [Concomitant]
     Indication: STAPHYLOCOCCAL INFECTION
     Dosage: UNK
     Route: 042
     Dates: start: 20071026, end: 20071113

REACTIONS (2)
  - AZOTAEMIA [None]
  - CARDIAC FAILURE [None]
